FAERS Safety Report 24118087 (Version 1)
Quarter: 2024Q3

REPORT INFORMATION
  Report Type: Spontaneous
  Country: US (occurrence: US)
  Receive Date: 20240722
  Receipt Date: 20240722
  Transmission Date: 20241017
  Serious: No
  Sender: NOVARTIS
  Company Number: US-002147023-NVSC2024US149642

PATIENT
  Age: 73 Year
  Sex: Female

DRUGS (1)
  1. LEQVIO [Suspect]
     Active Substance: INCLISIRAN SODIUM
     Indication: Hypercholesterolaemia
     Dosage: 284 MG/1.5 ML (DAY 0, 3 MONTHS, EVERY 6 MONTHS)
     Route: 058
     Dates: start: 2022, end: 2024

REACTIONS (1)
  - Drug ineffective [Unknown]
